FAERS Safety Report 8903126 (Version 3)
Quarter: 2013Q2

REPORT INFORMATION
  Report Type: Report from Study
  Country: FR (occurrence: FR)
  Receive Date: 20121113
  Receipt Date: 20130621
  Transmission Date: 20140414
  Serious: Yes (Death, Other)
  Sender: FDA-Public Use
  Company Number: FR-ACTELION-A-CH2010-34623

PATIENT
  Age: 69 Year
  Sex: Male
  Weight: 84 kg

DRUGS (14)
  1. TRACLEER [Suspect]
     Indication: SKIN ULCER
     Dosage: 62.5 MG, BID
     Route: 048
     Dates: start: 200903
  2. TRACLEER [Suspect]
     Dosage: 125 MG, BID
     Route: 048
     Dates: start: 200908, end: 200908
  3. PREVISCAN [Concomitant]
  4. TRIATEC [Concomitant]
  5. NOVO-DILTAZEM [Concomitant]
  6. INEXIUM [Concomitant]
  7. SPECIAFOLDINE [Concomitant]
  8. CORTANCYL [Concomitant]
  9. MONOTILDIEM [Concomitant]
  10. LASILIX [Concomitant]
  11. MOPRAL [Concomitant]
  12. DUPHALAC [Concomitant]
  13. DAFALGAN [Concomitant]
  14. TOPALGIC [Concomitant]

REACTIONS (3)
  - Lung cancer metastatic [Fatal]
  - Metastases to bone [Not Recovered/Not Resolved]
  - Thrombocytopenia [Recovered/Resolved]
